FAERS Safety Report 5620713-3 (Version None)
Quarter: 2008Q1

REPORT INFORMATION
  Report Type: 
  Country: None (occurrence: None)
  Receive Date: 20080208
  Receipt Date: 20080204
  Transmission Date: 20080703
  Serious: Yes (Hospitalization)
  Sender: FDA-Public Use
  Company Number: AU-MERCK-0802AUS00013

PATIENT
  Age: 73 Year
  Sex: Female

DRUGS (3)
  1. FOSAMAX [Suspect]
     Indication: OSTEOPOROSIS
     Route: 048
     Dates: end: 20060901
  2. ATORVASTATIN CALCIUM [Concomitant]
     Indication: HYPOTENSION
     Route: 065
  3. ESOMEPRAZOLE MAGNESIUM [Concomitant]
     Indication: ABDOMINAL PAIN UPPER
     Route: 065

REACTIONS (5)
  - ABDOMINAL DISTENSION [None]
  - CEREBROVASCULAR ACCIDENT [None]
  - GASTRIC DISORDER [None]
  - HEMIPARESIS [None]
  - NAUSEA [None]
